FAERS Safety Report 4620763-X (Version None)
Quarter: 2005Q1

REPORT INFORMATION
  Report Type: 
  Country: None (occurrence: None)
  Receive Date: 20050325
  Receipt Date: 20050310
  Transmission Date: 20050727
  Serious: Yes (Hospitalization, Other)
  Sender: FDA-Public Use
  Company Number: 2005BI002310

PATIENT
  Sex: Female

DRUGS (10)
  1. AVONEX [Suspect]
     Indication: MULTIPLE SCLEROSIS
     Dosage: 30 UG, QW; IM
     Route: 030
     Dates: end: 20041101
  2. AVONEX [Suspect]
     Indication: MULTIPLE SCLEROSIS
     Dosage: 30 UG, QW; IM
     Route: 030
     Dates: start: 19970101
  3. DANTRIUM [Concomitant]
  4. PROZAC [Concomitant]
  5. PREMPRO [Concomitant]
  6. LASIX [Concomitant]
  7. PROVIGIL [Concomitant]
  8. TYLENOL W/ CODEINE NO. 3 [Concomitant]
  9. AMITRYPTILLINE [Concomitant]
  10. LEVOXYL [Concomitant]

REACTIONS (4)
  - CELLULITIS [None]
  - INFECTION [None]
  - LIMB INJURY [None]
  - OSTEOMYELITIS [None]
